FAERS Safety Report 23575989 (Version 1)
Quarter: 2024Q1

REPORT INFORMATION
  Report Type: Spontaneous
  Country: US (occurrence: US)
  Receive Date: 20240228
  Receipt Date: 20240228
  Transmission Date: 20240410
  Serious: Yes (Hospitalization)
  Sender: FDA-Public Use
  Company Number: US-SA-SAC20240209001242

PATIENT
  Age: 64 Year
  Sex: Male

DRUGS (28)
  1. DUPIXENT [Suspect]
     Active Substance: DUPILUMAB
     Indication: Asthma
     Dosage: 200 MG, QOW
     Route: 058
     Dates: start: 20220809
  2. COLCHICINE [Concomitant]
     Active Substance: COLCHICINE
     Dosage: UNK
  3. DILTIAZEM HYDROCHLORIDE [Concomitant]
     Active Substance: DILTIAZEM HYDROCHLORIDE
     Dosage: UNK
  4. UBRELVY [Concomitant]
     Active Substance: UBROGEPANT
     Dosage: UNK
  5. DONEPEZIL HYDROCHLORIDE [Concomitant]
     Active Substance: DONEPEZIL HYDROCHLORIDE
     Dosage: UNK
  6. MIRALAX [Concomitant]
     Active Substance: POLYETHYLENE GLYCOL 3350
     Dosage: UNK
  7. VITAMIN B12 [Concomitant]
     Active Substance: CYANOCOBALAMIN
  8. ZINC [Concomitant]
     Active Substance: PYRITHIONE ZINC\ZINC\ZINC CHLORIDE
  9. VITAMIN D3 [Concomitant]
     Active Substance: CHOLECALCIFEROL
  10. KETOCONAZOLE [Concomitant]
     Active Substance: KETOCONAZOLE
  11. ATORVASTATIN CALCIUM [Concomitant]
     Active Substance: ATORVASTATIN CALCIUM
  12. DESIPRAMINE HYDROCHLORIDE [Concomitant]
     Active Substance: DESIPRAMINE HYDROCHLORIDE
  13. AMBIEN [Concomitant]
     Active Substance: ZOLPIDEM TARTRATE
  14. FLECAINIDE ACETATE [Concomitant]
     Active Substance: FLECAINIDE ACETATE
  15. TADALAFIL [Concomitant]
     Active Substance: TADALAFIL
  16. MAGNESIUM [Concomitant]
     Active Substance: MAGNESIUM
  17. FAMOTIDINE [Concomitant]
     Active Substance: FAMOTIDINE
  18. ALLEGRA D-12 HOUR [Concomitant]
     Active Substance: FEXOFENADINE HYDROCHLORIDE\PSEUDOEPHEDRINE HYDROCHLORIDE
  19. TRELEGY ELLIPTA [Concomitant]
     Active Substance: FLUTICASONE FUROATE\UMECLIDINIUM BROMIDE\VILANTEROL TRIFENATATE
  20. ALBUTEROL SULFATE [Concomitant]
     Active Substance: ALBUTEROL SULFATE
  21. SINGULAIR [Concomitant]
     Active Substance: MONTELUKAST SODIUM
  22. AZELASTINE HYDROCHLORIDE\FLUTICASONE PROPIONATE [Concomitant]
     Active Substance: AZELASTINE HYDROCHLORIDE\FLUTICASONE PROPIONATE
  23. MULTI TABS MAN 50+ [Concomitant]
  24. PROBIOTICS NOS [Concomitant]
     Active Substance: PROBIOTICS NOS
  25. D3 VITAMIN [Concomitant]
  26. PANTOPRAZOLE SODIUM [Concomitant]
     Active Substance: PANTOPRAZOLE SODIUM
  27. ALLEGRA D-12 HOUR [Concomitant]
     Active Substance: FEXOFENADINE HYDROCHLORIDE\PSEUDOEPHEDRINE HYDROCHLORIDE
  28. VITAMIN C [Concomitant]
     Active Substance: ASCORBIC ACID

REACTIONS (3)
  - Hospitalisation [Recovered/Resolved]
  - Asthma [Unknown]
  - Product dose omission issue [Unknown]

NARRATIVE: CASE EVENT DATE: 20240219
